FAERS Safety Report 5087011-0 (Version None)
Quarter: 2006Q3

REPORT INFORMATION
  Report Type: 
  Country: None (occurrence: None)
  Receive Date: 20060821
  Receipt Date: 20060809
  Transmission Date: 20061208
  Serious: Yes (Other)
  Sender: FDA-Public Use
  Company Number: 2006098837

PATIENT
  Age: 37 Year
  Sex: Male

DRUGS (2)
  1. SULFASALAZINE [Suspect]
     Indication: COLITIS ULCERATIVE
     Dosage: 6 GRAM, ORAL
     Route: 048
     Dates: start: 20060629, end: 20060805
  2. PREDNISOLONE [Concomitant]

REACTIONS (1)
  - PHOTOSENSITIVITY REACTION [None]
